FAERS Safety Report 15104704 (Version 1)
Quarter: 2018Q3

REPORT INFORMATION
  Report Type: Spontaneous
  Country: US (occurrence: US)
  Receive Date: 20180703
  Receipt Date: 20180703
  Transmission Date: 20181010
  Serious: No
  Sender: FDA-Public Use
  Company Number: US-BAUSCH-BL-2018-005520

PATIENT
  Age: 55 Year
  Sex: Female
  Weight: 113.5 kg

DRUGS (6)
  1. BESIVANCE [Suspect]
     Active Substance: BESIFLOXACIN
     Indication: PREOPERATIVE CARE
     Dosage: IN THE LEFT EYE
     Route: 047
     Dates: start: 20180217, end: 20180228
  2. PYRIDOSTIGMINE [Concomitant]
     Active Substance: PYRIDOSTIGMINE
     Indication: MYASTHENIA GRAVIS
     Dosage: STARTED TAKING IT 14 MONTHS AGO
     Route: 048
  3. LISINOPRIL. [Concomitant]
     Active Substance: LISINOPRIL
     Indication: HYPERTENSION
     Dosage: TWO 5MG TABLETS IN THE MORNING AND ONE 5MG TABLET AT NIGHT
     Route: 048
  4. PREVACID [Concomitant]
     Active Substance: LANSOPRAZOLE
     Indication: ABDOMINAL PAIN UPPER
     Dosage: ONE CAPSULE ONE OR TWO TIMES A DAY AS NEEDED
     Route: 048
     Dates: start: 2010
  5. XALATAN [Concomitant]
     Active Substance: LATANOPROST
     Indication: GLAUCOMA
     Dosage: STARTED USING IT YEARS AGO, IN LEFT EYE AT NIGHT
  6. TIMOLOL. [Concomitant]
     Active Substance: TIMOLOL
     Indication: GLAUCOMA
     Dosage: STARTED USING IT YEARS AGO, IN LEFT EYE IN THE MORNING

REACTIONS (3)
  - Drug dispensing issue [Recovered/Resolved]
  - Off label use [Recovered/Resolved]
  - Mydriasis [Recovering/Resolving]

NARRATIVE: CASE EVENT DATE: 20180217
